FAERS Safety Report 21571918 (Version 3)
Quarter: 2023Q4

REPORT INFORMATION
  Report Type: Report from Study
  Country: US (occurrence: US)
  Receive Date: 20221109
  Receipt Date: 20231219
  Transmission Date: 20240109
  Serious: Yes (Other)
  Sender: FDA-Public Use
  Company Number: US-ABBVIE-4137620

PATIENT
  Sex: Male

DRUGS (5)
  1. HUMIRA [Suspect]
     Active Substance: ADALIMUMAB
     Indication: Rheumatoid arthritis
     Dosage: FORM STRENGTH 40 MILLIGRAM?CITRATE FREE
     Route: 058
     Dates: start: 20100101
  2. HUMIRA [Suspect]
     Active Substance: ADALIMUMAB
     Dosage: FORM STRENGTH 40 MILLIGRAM?CITRATE FREE
     Route: 058
  3. Moderna COVID19 vaccine [Concomitant]
     Indication: COVID-19 immunisation
     Dosage: 1 IN ONCE, FIRST DOSE
     Route: 030
     Dates: start: 20210304, end: 20210304
  4. Moderna COVID19 vaccine [Concomitant]
     Indication: COVID-19 immunisation
     Dosage: 1 IN ONCE, SECOND DOSE
     Route: 030
     Dates: start: 20210405, end: 20210405
  5. Moderna COVID19 vaccine [Concomitant]
     Indication: COVID-19 immunisation
     Dosage: 1 IN ONCE, THIRD DOSE/BOOSTER
     Route: 030
     Dates: start: 20211025, end: 20211025

REACTIONS (4)
  - Skin abrasion [Unknown]
  - Arthralgia [Not Recovered/Not Resolved]
  - Back pain [Not Recovered/Not Resolved]
  - Therapeutic response shortened [Unknown]
